FAERS Safety Report 8413557-0 (Version None)
Quarter: 2012Q2

REPORT INFORMATION
  Report Type: 
  Country: None (occurrence: None)
  Receive Date: 20120605
  Receipt Date: 20120525
  Transmission Date: 20120825
  Serious: Yes (Other)
  Sender: FDA-Public Use
  Company Number: FR-GLAXOSMITHKLINE-B0803992A

PATIENT
  Sex: Female

DRUGS (7)
  1. FLUOROURACIL [Suspect]
     Indication: CHEMOTHERAPY
     Route: 042
     Dates: start: 20120403
  2. CYCLOPHOSPHAMIDE [Suspect]
     Indication: CHEMOTHERAPY
     Dosage: 500MGM2 PER DAY
     Route: 042
     Dates: start: 20120403
  3. EMEND [Suspect]
     Indication: PROPHYLAXIS
     Route: 048
     Dates: start: 20120403, end: 20120405
  4. PRIMPERAN TAB [Suspect]
     Indication: PROPHYLAXIS
     Dosage: 10MG PER DAY
     Route: 042
     Dates: start: 20120403
  5. PREDNISOLONE [Suspect]
     Indication: PROPHYLAXIS
     Dosage: 20MG THREE TIMES PER DAY
     Route: 048
     Dates: start: 20120403, end: 20120403
  6. EPIRUBICIN [Suspect]
     Indication: CHEMOTHERAPY
     Dosage: 100MGM2 PER DAY
     Route: 042
     Dates: start: 20120403
  7. ZOFRAN [Suspect]
     Indication: PROPHYLAXIS
     Dosage: 8MG TWICE PER DAY
     Route: 048
     Dates: start: 20120403, end: 20120404

REACTIONS (5)
  - ASTHENIA [None]
  - POLLAKIURIA [None]
  - HAEMATURIA [None]
  - MUSCULAR WEAKNESS [None]
  - MOTOR DYSFUNCTION [None]
